FAERS Safety Report 6274689-9 (Version None)
Quarter: 2009Q3

REPORT INFORMATION
  Report Type: 
  Country: None (occurrence: None)
  Receive Date: 20090721
  Receipt Date: 20071127
  Transmission Date: 20100115
  Serious: Yes (Hospitalization, Other)
  Sender: FDA-Public Use
  Company Number: US-ASTRAZENECA-2007UW20606

PATIENT
  Age: 13857 Day
  Sex: Female
  Weight: 58.1 kg

DRUGS (19)
  1. SEROQUEL [Suspect]
     Indication: ILL-DEFINED DISORDER
     Dosage: 200 - 300 MG
     Route: 048
     Dates: start: 20020101, end: 20050101
  2. SEROQUEL [Suspect]
     Indication: ANXIETY
     Dosage: 200 - 300 MG
     Route: 048
     Dates: start: 20020101, end: 20050101
  3. SEROQUEL [Suspect]
     Dosage: 200-300 MG
     Route: 048
     Dates: start: 20041130
  4. SEROQUEL [Suspect]
     Dosage: 200-300 MG
     Route: 048
     Dates: start: 20041130
  5. RISPERDAL [Concomitant]
  6. NEURONTIN [Concomitant]
     Dosage: 300 MG,1 Q AM, 2 QHS
     Route: 048
     Dates: start: 20041130
  7. NEURONTIN [Concomitant]
  8. EFFEXOR [Concomitant]
  9. WELLBUTRIN [Concomitant]
  10. KLONOPIN [Concomitant]
     Dosage: 1 MG BID, EXCEPT WED AND SAT TAKE QD
     Route: 048
     Dates: start: 20041130
  11. VIVACTIL [Concomitant]
     Indication: BIPOLAR DISORDER
     Route: 048
     Dates: start: 20041130
  12. LEXAPRO [Concomitant]
     Dosage: 10 MG, 3,QHS
     Route: 048
     Dates: start: 20041130
  13. LOXITANE [Concomitant]
     Route: 048
     Dates: start: 20041130
  14. METFORMIN HCL [Concomitant]
     Dates: start: 20051003
  15. AVANDIA [Concomitant]
     Dates: start: 20051003
  16. FERROUS SULFATE TAB [Concomitant]
     Dates: start: 20051003
  17. CYMBALTA [Concomitant]
     Dates: start: 20051003
  18. AMARYL [Concomitant]
     Dates: start: 20051003
  19. DETROL LA [Concomitant]
     Route: 048
     Dates: start: 20070108

REACTIONS (5)
  - DIABETES MELLITUS [None]
  - DYSKINESIA [None]
  - SURGERY [None]
  - TARDIVE DYSKINESIA [None]
  - TYPE 2 DIABETES MELLITUS [None]
